FAERS Safety Report 9381395 (Version 1)
Quarter: 2013Q3

REPORT INFORMATION
  Report Type: Report from Study
  Country: US (occurrence: US)
  Receive Date: 20130703
  Receipt Date: 20130703
  Transmission Date: 20140515
  Serious: Yes (Other)
  Sender: FDA-Public Use
  Company Number: PHEH2013US013992

PATIENT
  Sex: Female

DRUGS (1)
  1. GLEEVEC [Suspect]
     Indication: CHRONIC MYELOID LEUKAEMIA
     Dosage: 400 MG, QD
     Route: 048

REACTIONS (11)
  - Multiple sclerosis [Unknown]
  - Neurogenic bladder [Unknown]
  - Sleep apnoea syndrome [Unknown]
  - Spinal column stenosis [Unknown]
  - Meningitis [Unknown]
  - Optic neuritis [Unknown]
  - Visual impairment [Unknown]
  - Osteopenia [Unknown]
  - Osteoarthritis [Unknown]
  - Migraine [Unknown]
  - Back pain [Unknown]
